FAERS Safety Report 23861706 (Version 1)
Quarter: 2024Q2

REPORT INFORMATION
  Report Type: Report from Study
  Country: CO (occurrence: CO)
  Receive Date: 20240516
  Receipt Date: 20240516
  Transmission Date: 20240716
  Serious: Yes (Hospitalization)
  Sender: FDA-Public Use
  Company Number: CO-JNJFOC-20240338248

PATIENT
  Age: 86 Year
  Sex: Female
  Weight: 78 kg

DRUGS (3)
  1. SIMPONI [Suspect]
     Active Substance: GOLIMUMAB
     Indication: Rheumatoid arthritis
     Dosage: LAST DRUG APPLICATION: 18-FEB-2024
     Route: 058
     Dates: start: 20151212
  2. SIMPONI [Suspect]
     Active Substance: GOLIMUMAB
     Dosage: LAST DRUG APPLICATION: 13-MAR-2024
     Route: 058
     Dates: start: 20240308
  3. CETIRIZINE [Concomitant]
     Active Substance: CETIRIZINE HYDROCHLORIDE

REACTIONS (3)
  - Urinary tract infection [Unknown]
  - Illness [Unknown]
  - Off label use [Unknown]

NARRATIVE: CASE EVENT DATE: 20240308
